FAERS Safety Report 19412380 (Version 2)
Quarter: 2021Q3

REPORT INFORMATION
  Report Type: Spontaneous
  Country: JP (occurrence: JP)
  Receive Date: 20210614
  Receipt Date: 20210806
  Transmission Date: 20211014
  Serious: Yes (Hospitalization, Other)
  Sender: FDA-Public Use
  Company Number: JP-ELI_LILLY_AND_COMPANY-JP202106004689

PATIENT
  Sex: Female

DRUGS (12)
  1. DULOXETINE HYDROCHLORIDE. [Suspect]
     Active Substance: DULOXETINE HYDROCHLORIDE
     Indication: DEPRESSION
     Dosage: UNK UNK, BID
     Route: 064
  2. THIOPENTAL [Concomitant]
     Active Substance: THIOPENTAL
  3. MAGMITT [Concomitant]
     Active Substance: MAGNESIUM OXIDE
     Indication: CONSTIPATION
     Dosage: 990 MG, TID
     Route: 064
  4. THIOPENTAL [Concomitant]
     Active Substance: THIOPENTAL
  5. CIMETIDINE [Concomitant]
     Active Substance: CIMETIDINE
     Indication: PROPHYLAXIS
     Route: 048
  6. SUXAMETHONIUM [Concomitant]
     Active Substance: SUCCINYLCHOLINE
     Dosage: 2 MG/KG
  7. BROTIZOLAM [Suspect]
     Active Substance: BROTIZOLAM
     Indication: INSOMNIA
     Dosage: 0.25 UG, DAILY
     Route: 064
  8. CIMETIDINE [Concomitant]
     Active Substance: CIMETIDINE
     Indication: PROPHYLAXIS
     Route: 048
  9. SUXAMETHONIUM [Concomitant]
     Active Substance: SUCCINYLCHOLINE
     Dosage: 2 MG/KG
  10. DULOXETINE HYDROCHLORIDE. [Suspect]
     Active Substance: DULOXETINE HYDROCHLORIDE
     Indication: DEPRESSION
     Dosage: UNK UNK, BID
     Route: 064
  11. BROTIZOLAM [Suspect]
     Active Substance: BROTIZOLAM
     Indication: INSOMNIA
     Dosage: 0.25 UG, DAILY
     Route: 064
  12. MAGMITT [Concomitant]
     Active Substance: MAGNESIUM OXIDE
     Indication: CONSTIPATION
     Dosage: 990 MG, TID
     Route: 064

REACTIONS (4)
  - Neonatal oversedation [Recovered/Resolved]
  - Tachycardia foetal [Unknown]
  - Foetal exposure during pregnancy [Recovered/Resolved]
  - Neonatal respiratory depression [Recovered/Resolved]

NARRATIVE: CASE EVENT DATE: 20161212
